FAERS Safety Report 5630915-8 (Version None)
Quarter: 2008Q1

REPORT INFORMATION
  Report Type: 
  Country: None (occurrence: None)
  Receive Date: 20080214
  Receipt Date: 20080201
  Transmission Date: 20080703
  Serious: Yes (Other)
  Sender: FDA-Public Use
  Company Number: 230968J07USA

PATIENT
  Age: 49 Year
  Sex: Male

DRUGS (5)
  1. REBIF [Suspect]
     Indication: MULTIPLE SCLEROSIS
     Dosage: 44 MCG, 3 IN 1 WEEKS, SUBCUTANEOUS
     Route: 058
     Dates: start: 20070827
  2. EFFEXOR [Concomitant]
  3. PROVIGIL [Concomitant]
  4. VERAPAMIL [Concomitant]
  5. LOVASTATIN [Concomitant]

REACTIONS (2)
  - ATRIAL FIBRILLATION [None]
  - DIZZINESS [None]
